FAERS Safety Report 6367480-6 (Version None)
Quarter: 2009Q3

REPORT INFORMATION
  Report Type: 
  Country: None (occurrence: None)
  Receive Date: 20090915
  Receipt Date: 20090831
  Transmission Date: 20100115
  Serious: Yes (Other)
  Sender: FDA-Public Use
  Company Number: 8036233

PATIENT
  Age: 7 Month
  Sex: Male
  Weight: 7.62 kg

DRUGS (4)
  1. KEPPRA [Suspect]
     Dosage: 2000 MG TRP
     Route: 064
  2. KEPPRA [Suspect]
     Dosage: 1250 MG 2/D TRP
     Route: 064
  3. VITAMIN TAB [Suspect]
  4. FOLIC ACID [Concomitant]

REACTIONS (3)
  - DRUG EXPOSURE VIA BREAST MILK [None]
  - MATERNAL DRUGS AFFECTING FOETUS [None]
  - WEIGHT GAIN POOR [None]
